FAERS Safety Report 7362746-5 (Version None)
Quarter: 2011Q1

REPORT INFORMATION
  Report Type: 
  Country: None (occurrence: None)
  Receive Date: 20110321
  Receipt Date: 20110311
  Transmission Date: 20110831
  Serious: No
  Sender: FDA-Public Use
  Company Number: US-BIOGENIDEC-2010BI018656

PATIENT
  Age: 75 Year
  Sex: Female

DRUGS (2)
  1. TYSABRI [Suspect]
     Indication: MULTIPLE SCLEROSIS
     Route: 042
     Dates: start: 20100508
  2. BENADRYL [Concomitant]
     Indication: PREMEDICATION
     Dates: start: 20100518

REACTIONS (2)
  - SOMNOLENCE [None]
  - INFLUENZA [None]
